FAERS Safety Report 9076851 (Version 1)
Quarter: 2013Q1

REPORT INFORMATION
  Report Type: Report from Study
  Country: US (occurrence: US)
  Receive Date: 20130129
  Receipt Date: 20130129
  Transmission Date: 20140127
  Serious: Yes (Other)
  Sender: FDA-Public Use
  Company Number: US-ABBOTT-12P-163-0938318-00

PATIENT
  Sex: Male

DRUGS (6)
  1. HUMIRA 40 MG/0.8 ML PEN [Suspect]
     Indication: ANKYLOSING SPONDYLITIS
     Route: 058
     Dates: start: 2005, end: 201112
  2. DICLOFENAC [Concomitant]
     Indication: ANKYLOSING SPONDYLITIS
  3. VERAMYST [Concomitant]
     Indication: SEASONAL ALLERGY
  4. TURMERIC [Concomitant]
     Indication: MEDICAL DIET
  5. VITAMIN D2 [Concomitant]
     Indication: VITAMIN SUPPLEMENTATION
  6. VITMAIN D3 [Concomitant]
     Indication: VITAMIN SUPPLEMENTATION

REACTIONS (2)
  - B-cell lymphoma [Recovering/Resolving]
  - Tinea pedis [Recovered/Resolved]
